FAERS Safety Report 7941793-6 (Version None)
Quarter: 2011Q4

REPORT INFORMATION
  Report Type: 
  Country: None (occurrence: None)
  Receive Date: 20111128
  Receipt Date: 20111122
  Transmission Date: 20120403
  Serious: Yes (Hospitalization, Other)
  Sender: FDA-Public Use
  Company Number: BR-PFIZER INC-2011286260

PATIENT
  Age: 62 Year
  Sex: Male
  Weight: 102 kg

DRUGS (4)
  1. METFORMIN HYDROCHLORIDE [Concomitant]
     Indication: DIABETES MELLITUS
     Dosage: 850 MG, 2X/DAY
  2. ASPIRIN [Concomitant]
     Indication: ANTICOAGULANT THERAPY
     Dosage: UNK
     Dates: start: 20110301
  3. VARENICLINE TARTRATE [Suspect]
     Indication: TOBACCO USER
     Dosage: UNK
     Route: 048
     Dates: start: 20111015, end: 20110101
  4. INSULIN [Concomitant]
     Indication: DIABETES MELLITUS
     Dosage: 50 IU, 2X/DAY

REACTIONS (5)
  - LUNG DISORDER [None]
  - SPEECH DISORDER [None]
  - INFARCTION [None]
  - LIMB DISCOMFORT [None]
  - LIMB OPERATION [None]
